FAERS Safety Report 7545957-5 (Version None)
Quarter: 2011Q2

REPORT INFORMATION
  Report Type: 
  Country: None (occurrence: None)
  Receive Date: 20110614
  Receipt Date: 20110601
  Transmission Date: 20111010
  Serious: No
  Sender: FDA-Public Use
  Company Number: PHHY2011US47907

PATIENT
  Sex: Male
  Weight: 195 kg

DRUGS (10)
  1. TASIGNA [Suspect]
     Dosage: 400 MG, BID
     Route: 048
  2. ASPIRIN [Concomitant]
  3. LISINOPRIL [Concomitant]
  4. LIPITOR [Concomitant]
  5. GLIMEPIRIDE [Concomitant]
  6. METFORMIN HCL [Concomitant]
  7. ISOSORBIDE DINITRATE [Concomitant]
  8. TASIGNA [Suspect]
     Dosage: 200 MG, BID
     Route: 048
     Dates: start: 20110131
  9. NIASPAN [Concomitant]
  10. METOPROLOL [Concomitant]

REACTIONS (5)
  - BACK PAIN [None]
  - NAUSEA [None]
  - VOMITING [None]
  - CONSTIPATION [None]
  - RASH [None]
